APPROVED DRUG PRODUCT: XURIDEN
Active Ingredient: URIDINE TRIACETATE
Strength: 2GM/PACKET
Dosage Form/Route: GRANULE;ORAL
Application: N208169 | Product #001
Applicant: BTG INTERNATIONAL INC
Approved: Sep 4, 2015 | RLD: Yes | RS: Yes | Type: RX